FAERS Safety Report 14823249 (Version 3)
Quarter: 2019Q3

REPORT INFORMATION
  Report Type: Spontaneous
  Country: US (occurrence: US)
  Receive Date: 20180427
  Receipt Date: 20190821
  Transmission Date: 20191004
  Serious: Yes (Other)
  Sender: FDA-Public Use
  Company Number: US-ASTRAZENECA-2018SE50463

PATIENT
  Age: 532 Month
  Sex: Male
  Weight: 108.9 kg

DRUGS (39)
  1. RITONAVIR. [Concomitant]
     Active Substance: RITONAVIR
     Indication: HIV ANTIBODY
     Dates: start: 2006
  2. STAVUDINE. [Concomitant]
     Active Substance: STAVUDINE
  3. MIDA20LAM HCL [Concomitant]
  4. PRIMAQUINE [Concomitant]
     Active Substance: PRIMAQUINE PHOSPHATE
  5. ROSUVASTATIN. [Concomitant]
     Active Substance: ROSUVASTATIN
     Indication: BLOOD CHOLESTEROL
     Dates: start: 2015, end: 2017
  6. FUROSEMIDE. [Concomitant]
     Active Substance: FUROSEMIDE
     Indication: FLUID RETENTION
     Dates: start: 2009, end: 2017
  7. MAALOX ANTACID [Concomitant]
     Active Substance: ALUMINUM HYDROXIDE\DIMETHICONE\MAGNESIUM HYDROXIDE
     Dates: start: 2007
  8. DARUNAVIR [Concomitant]
     Active Substance: DARUNAVIR
  9. BENADRYL [Concomitant]
     Active Substance: DIPHENHYDRAMINE HYDROCHLORIDE
     Indication: MULTIPLE ALLERGIES
     Dates: start: 2006
  10. SIMETHICONE (DIMETHICONE) [Concomitant]
     Active Substance: DIMETHICONE
     Indication: FLATULENCE
     Dates: start: 2007, end: 2013
  11. DARUNAVIR [Concomitant]
     Active Substance: DARUNAVIR
     Indication: HIV ANTIBODY
     Dates: start: 2014, end: 2017
  12. LAMIVUDINE. [Concomitant]
     Active Substance: LAMIVUDINE
     Indication: HIV ANTIBODY
     Dates: start: 2007, end: 2011
  13. LORATADINE. [Concomitant]
     Active Substance: LORATADINE
  14. CLEOCIN [Concomitant]
     Active Substance: CLINDAMYCIN PHOSPHATE
  15. LEVAQUIN [Concomitant]
     Active Substance: LEVOFLOXACIN
  16. RANITIDINE. [Concomitant]
     Active Substance: RANITIDINE
     Indication: GASTROOESOPHAGEAL REFLUX DISEASE
     Dates: start: 2006, end: 2010
  17. KETOCONAZOLE. [Concomitant]
     Active Substance: KETOCONAZOLE
     Dates: start: 2007, end: 2010
  18. MILK OF MAGNESIS [Concomitant]
     Dates: start: 2006
  19. TYLENOL [Concomitant]
     Active Substance: ACETAMINOPHEN
     Indication: PAIN
     Dates: start: 2006
  20. KALETRA [Concomitant]
     Active Substance: LOPINAVIR\RITONAVIR
     Indication: HIV ANTIBODY
     Dates: start: 2006, end: 2013
  21. NISOLDIPINE. [Concomitant]
     Active Substance: NISOLDIPINE
     Indication: BLOOD PRESSURE MEASUREMENT
     Dates: start: 2006, end: 2010
  22. POTASSIUM HCL [Concomitant]
     Indication: HYPOKALAEMIA
     Dates: start: 2006, end: 2016
  23. TRUVADA [Concomitant]
     Active Substance: EMTRICITABINE\TENOFOVIR DISOPROXIL FUMARATE
     Indication: HIV ANTIBODY
     Dates: start: 2013, end: 2017
  24. DAPSONE. [Concomitant]
     Active Substance: DAPSONE
  25. ZIDOVUDINE. [Concomitant]
     Active Substance: ZIDOVUDINE
  26. ATROPINE. [Concomitant]
     Active Substance: ATROPINE
  27. AMITIZA [Concomitant]
     Active Substance: LUBIPROSTONE
  28. NEXIUM [Suspect]
     Active Substance: ESOMEPRAZOLE MAGNESIUM
     Indication: GASTROOESOPHAGEAL REFLUX DISEASE
     Route: 048
     Dates: start: 20070102, end: 2011
  29. FENTANYL. [Concomitant]
     Active Substance: FENTANYL
     Indication: PAIN
     Dates: start: 2010, end: 2011
  30. CITALOPRAM [Concomitant]
     Active Substance: CITALOPRAM HYDROBROMIDE
  31. HYDROXYZINE [Concomitant]
     Active Substance: HYDROXYZINE HYDROCHLORIDE
  32. VENLAFAXIN E XR [Concomitant]
  33. IBUPROFEN. [Concomitant]
     Active Substance: IBUPROFEN
  34. ATROVENT [Concomitant]
     Active Substance: IPRATROPIUM BROMIDE
  35. DONNATAL [Concomitant]
     Active Substance: ATROPINE SULFATE\HYOSCYAMINE SULFATE\PHENOBARBITAL\SCOPOLAMINE HYDROBROMIDE
  36. CETRIZINE [Concomitant]
     Active Substance: CETIRIZINE HYDROCHLORIDE
  37. LISINOPRIL. [Concomitant]
     Active Substance: LISINOPRIL
     Indication: BLOOD PRESSURE MEASUREMENT
     Dates: start: 2010
  38. METRONIDAZOLE. [Concomitant]
     Active Substance: METRONIDAZOLE
  39. CLINDAMYCIN. [Concomitant]
     Active Substance: CLINDAMYCIN

REACTIONS (3)
  - Acute kidney injury [Unknown]
  - Chronic kidney disease [Not Recovered/Not Resolved]
  - Renal failure [Unknown]

NARRATIVE: CASE EVENT DATE: 200609
